FAERS Safety Report 7775722-5 (Version None)
Quarter: 2011Q3

REPORT INFORMATION
  Report Type: 
  Country: None (occurrence: None)
  Receive Date: 20110923
  Receipt Date: 20110914
  Transmission Date: 20111222
  Serious: Yes (Other)
  Sender: FDA-Public Use
  Company Number: FR-VIIV HEALTHCARE LIMITED-B0747761A

PATIENT
  Sex: Male

DRUGS (2)
  1. VIRAMUNE [Concomitant]
     Indication: HIV INFECTION
     Route: 065
  2. ABACAVIR SULFATE AND LAMIVUDINE [Suspect]
     Indication: HIV INFECTION
     Dosage: 1UNIT PER DAY
     Route: 048
     Dates: start: 20110401, end: 20110608

REACTIONS (2)
  - ASTHENIA [None]
  - CYTOLYTIC HEPATITIS [None]
